FAERS Safety Report 10213914 (Version 2)
Quarter: 2014Q2

REPORT INFORMATION
  Report Type: Spontaneous
  Country: CL (occurrence: None)
  Receive Date: 20140530
  Receipt Date: 20140613
  Transmission Date: 20141212
  Serious: Yes (Hospitalization, Disabling)
  Sender: FDA-Public Use
  Company Number: SYM-2014-21367

PATIENT
  Age: 34 Year
  Sex: Female

DRUGS (5)
  1. METRONIDAZOLE [Suspect]
     Indication: LIVER ABSCESS
  2. CEFTRIAXONE (CEFTRIAXONE) [Concomitant]
  3. AMPICILLIN (AMPICILLIN) [Concomitant]
  4. LINEZOLID (LINEZOLID) [Concomitant]
  5. CIPROFLOXACIN (CIPROFLOXACIN) [Concomitant]

REACTIONS (5)
  - Neurotoxicity [None]
  - Cerebellar syndrome [None]
  - Polyneuropathy [None]
  - Nausea [None]
  - Vomiting [None]
